FAERS Safety Report 4308472-8 (Version None)
Quarter: 2004Q1

REPORT INFORMATION
  Report Type: 
  Country: None (occurrence: None)
  Receive Date: 20040301
  Receipt Date: 20040218
  Transmission Date: 20041129
  Serious: Yes (Death)
  Sender: FDA-Public Use
  Company Number: CH-ROCHE-359165

PATIENT
  Sex: Male

DRUGS (2)
  1. TASMAR [Suspect]
     Indication: PARKINSONISM
     Route: 065
  2. MADOPAR [Suspect]
     Indication: PARKINSONISM
     Route: 065

REACTIONS (3)
  - DRUG WITHDRAWAL SYNDROME [None]
  - MULTI-ORGAN FAILURE [None]
  - NEUROLEPTIC MALIGNANT SYNDROME [None]
